FAERS Safety Report 5166392-3 (Version None)
Quarter: 2006Q4

REPORT INFORMATION
  Report Type: 
  Country: None (occurrence: None)
  Receive Date: 20061129
  Receipt Date: 20060928
  Transmission Date: 20070319
  Serious: Yes (Death, Hospitalization)
  Sender: FDA-Public Use
  Company Number: 2006CT000822

PATIENT
  Age: 21 Year
  Sex: Female
  Weight: 58.9676 kg

DRUGS (5)
  1. VENTAVIS [Suspect]
     Indication: PULMONARY HYPERTENSION
     Dosage: 5 UG; 6XD; IH
     Route: 055
     Dates: start: 20060915, end: 20060928
  2. LASIX [Concomitant]
  3. WARFARIN SODIUM [Concomitant]
  4. ALBUTEROL [Concomitant]
  5. CIPROFLOXACIN [Concomitant]

REACTIONS (7)
  - CARDIO-RESPIRATORY ARREST [None]
  - CHEST PAIN [None]
  - DIARRHOEA [None]
  - DRUG INEFFECTIVE [None]
  - DYSPNOEA [None]
  - HYPOXIA [None]
  - VOMITING [None]
